FAERS Safety Report 15632314 (Version 2)
Quarter: 2019Q1

REPORT INFORMATION
  Report Type: Spontaneous
  Country: TH (occurrence: TH)
  Receive Date: 20181119
  Receipt Date: 20190124
  Transmission Date: 20190417
  Serious: Yes (Other)
  Sender: FDA-Public Use
  Company Number: TH-PFIZER INC-2018470978

PATIENT
  Sex: Female
  Weight: 1.76 kg

DRUGS (2)
  1. METHYLPREDNISOLONE SODIUM SUCCINATE. [Suspect]
     Active Substance: METHYLPREDNISOLONE SODIUM SUCCINATE
     Indication: ENCEPHALITIS AUTOIMMUNE
     Dosage: ONE COURSE OF PULSED
     Route: 064
  2. IMMUNOGLOBULIN HUMAN [Suspect]
     Active Substance: HUMAN IMMUNOGLOBULIN G
     Indication: ENCEPHALITIS AUTOIMMUNE
     Dosage: THREE COURSES
     Route: 064

REACTIONS (6)
  - Cortical dysplasia [Unknown]
  - Developmental delay [Unknown]
  - Movement disorder [Unknown]
  - Premature baby [Unknown]
  - Seizure [Unknown]
  - Maternal exposure during pregnancy [Unknown]
